FAERS Safety Report 8387995-9 (Version None)
Quarter: 2012Q2

REPORT INFORMATION
  Report Type: 
  Country: None (occurrence: None)
  Receive Date: 20120525
  Receipt Date: 20120521
  Transmission Date: 20120825
  Serious: Yes (Hospitalization)
  Sender: FDA-Public Use
  Company Number: PHHY2012US043310

PATIENT
  Age: 54 Year
  Sex: Female

DRUGS (3)
  1. SIMVASTATIN [Concomitant]
     Dosage: 20 MG, DAILY
  2. LISINOPRIL [Suspect]
     Dosage: 5 MG, DAILY
  3. METFORMIN HCL [Suspect]
     Dosage: 1000 MG, BID

REACTIONS (13)
  - SYNCOPE [None]
  - RESPIRATORY FAILURE [None]
  - HYPOTHERMIA [None]
  - ASTHENIA [None]
  - RESPIRATORY DISTRESS [None]
  - VOMITING [None]
  - URINE OUTPUT INCREASED [None]
  - LACTIC ACIDOSIS [None]
  - NAUSEA [None]
  - SHOCK [None]
  - RENAL FAILURE ACUTE [None]
  - HYPOTENSION [None]
  - URINARY TRACT INFECTION [None]
